FAERS Safety Report 12329488 (Version 1)
Quarter: 2016Q2

REPORT INFORMATION
  Report Type: Report from Study
  Country: US (occurrence: US)
  Receive Date: 20160503
  Receipt Date: 20160503
  Transmission Date: 20160815
  Serious: Yes (Death, Other)
  Sender: FDA-Public Use
  Company Number: US-GILEAD-2016-0211046

PATIENT
  Age: 77 Year
  Sex: Female

DRUGS (21)
  1. LEVOTHYROXIN [Concomitant]
     Active Substance: LEVOTHYROXINE
  2. VITAMIN D                          /00107901/ [Concomitant]
     Active Substance: ERGOCALCIFEROL
  3. XANAX [Concomitant]
     Active Substance: ALPRAZOLAM
  4. CYMBALTA [Concomitant]
     Active Substance: DULOXETINE HYDROCHLORIDE
  5. ALPRAZOLAM. [Concomitant]
     Active Substance: ALPRAZOLAM
  6. ALLOPURINOL. [Concomitant]
     Active Substance: ALLOPURINOL
  7. ZETIA [Concomitant]
     Active Substance: EZETIMIBE
  8. FUROSEMIDE. [Concomitant]
     Active Substance: FUROSEMIDE
  9. OMEPRAZOLE. [Concomitant]
     Active Substance: OMEPRAZOLE
  10. LORAZEPAM. [Concomitant]
     Active Substance: LORAZEPAM
  11. DIGOX                              /00017701/ [Concomitant]
  12. TRAMADOL. [Concomitant]
     Active Substance: TRAMADOL
  13. FERGON [Concomitant]
     Active Substance: FERROUS GLUCONATE
  14. FERROUS SULFATE. [Concomitant]
     Active Substance: FERROUS SULFATE
  15. SILDENAFIL. [Concomitant]
     Active Substance: SILDENAFIL
  16. SPIRONOLACTONE. [Concomitant]
     Active Substance: SPIRONOLACTONE
  17. AMBRISENTAN [Suspect]
     Active Substance: AMBRISENTAN
     Indication: PULMONARY HYPERTENSION
     Dosage: 10 MG, QD
     Route: 065
     Dates: start: 20100113
  18. DONEPEZIL. [Concomitant]
     Active Substance: DONEPEZIL
  19. LASIX [Concomitant]
     Active Substance: FUROSEMIDE
  20. PRILOSEC [Concomitant]
     Active Substance: OMEPRAZOLE MAGNESIUM
  21. CITALOPRAM [Concomitant]
     Active Substance: CITALOPRAM HYDROBROMIDE

REACTIONS (1)
  - Death [Fatal]

NARRATIVE: CASE EVENT DATE: 201604
